FAERS Safety Report 24439155 (Version 1)
Quarter: 2024Q4

REPORT INFORMATION
  Report Type: Spontaneous
  Country: US (occurrence: None)
  Receive Date: 20241014
  Receipt Date: 20241014
  Transmission Date: 20250114
  Serious: Yes (Life-Threatening, Hospitalization)
  Sender: Public
  Company Number: None

PATIENT
  Age: 54 Year
  Sex: Male
  Weight: 87.3 kg

DRUGS (5)
  1. UNSPECIFIED INGREDIENT [Suspect]
     Active Substance: UNSPECIFIED INGREDIENT
     Indication: Back pain
     Dosage: OTHER QUANTITY : 2 TABLET(S);?FREQUENCY : 3 TIMES A DAY;?
     Route: 048
     Dates: start: 20240701, end: 20241002
  2. UNSPECIFIED INGREDIENT [Suspect]
     Active Substance: UNSPECIFIED INGREDIENT
     Indication: Arthralgia
  3. DICLOFENAC [Suspect]
     Active Substance: DICLOFENAC
  4. DEXAMETHASONE [Suspect]
     Active Substance: DEXAMETHASONE
  5. LEVOTHYROXINE [Concomitant]
     Active Substance: LEVOTHYROXINE

REACTIONS (3)
  - Gastrointestinal ulcer perforation [None]
  - Product use complaint [None]
  - Product formulation issue [None]

NARRATIVE: CASE EVENT DATE: 20241002
